FAERS Safety Report 7955052-9 (Version None)
Quarter: 2011Q4

REPORT INFORMATION
  Report Type: 
  Country: None (occurrence: None)
  Receive Date: 20111202
  Receipt Date: 20111123
  Transmission Date: 20120403
  Serious: Yes (Life-Threatening, Hospitalization)
  Sender: FDA-Public Use
  Company Number: GB-PFIZER INC-2011203107

PATIENT
  Age: 64 Year
  Sex: Male
  Weight: 170 kg

DRUGS (1)
  1. IBUPROFEN [Suspect]
     Indication: OSTEOARTHRITIS
     Dosage: 400 MG, 3X/DAY
     Route: 048
     Dates: start: 20100823, end: 20111114

REACTIONS (2)
  - INTESTINAL ULCER [None]
  - SMALL INTESTINAL STENOSIS [None]
